FAERS Safety Report 9094787 (Version 1)
Quarter: 2013Q1

REPORT INFORMATION
  Report Type: Spontaneous
  Country: US (occurrence: US)
  Receive Date: 20130220
  Receipt Date: 20130220
  Transmission Date: 20140127
  Serious: No
  Sender: FDA-Public Use
  Company Number: US-BIOGENIDEC-2013BI014070

PATIENT
  Sex: Female

DRUGS (1)
  1. TYSABRI [Suspect]
     Indication: MULTIPLE SCLEROSIS
     Route: 042
     Dates: start: 20071025

REACTIONS (4)
  - Nervous system disorder [Recovered/Resolved]
  - Hemiparesis [Recovered/Resolved]
  - Drug effect decreased [Recovered/Resolved]
  - Multiple sclerosis relapse [Recovered/Resolved]
